FAERS Safety Report 4273722-3 (Version None)
Quarter: 2004Q1

REPORT INFORMATION
  Report Type: 
  Country: None (occurrence: None)
  Receive Date: 20040116
  Receipt Date: 20040116
  Transmission Date: 20041129
  Serious: No
  Sender: FDA-Public Use
  Company Number: None

PATIENT
  Age: 60 Year
  Sex: Male
  Weight: 62.1428 kg

DRUGS (2)
  1. PACLITAXEL [Suspect]
     Indication: OESOPHAGEAL CARCINOMA
  2. CARBOPLATIN [Suspect]

REACTIONS (3)
  - DYSPHAGIA [None]
  - OESOPHAGEAL OBSTRUCTION [None]
  - OESOPHAGEAL STENOSIS [None]
